FAERS Safety Report 26068309 (Version 2)
Quarter: 2025Q4

REPORT INFORMATION
  Report Type: Spontaneous
  Country: US (occurrence: US)
  Receive Date: 20251120
  Receipt Date: 20251124
  Transmission Date: 20260117
  Serious: No
  Sender: Kenvue
  Company Number: US-KENVUE-20251106188

PATIENT
  Sex: Male

DRUGS (1)
  1. MENS ROGAINE EXTRA STRENGTH [Suspect]
     Active Substance: MINOXIDIL
     Indication: Alopecia
     Dosage: USING THIS PRODUCT A FEW YEARS AGO, USING THIS PRODUCT DAILY FOR AT LEAST 3 YEARS

REACTIONS (2)
  - Alopecia [Not Recovered/Not Resolved]
  - Drug ineffective [Unknown]
